FAERS Safety Report 6467451-5 (Version None)
Quarter: 2009Q4

REPORT INFORMATION
  Report Type: 
  Country: None (occurrence: None)
  Receive Date: 20091202
  Receipt Date: 20091123
  Transmission Date: 20100525
  Serious: Yes (Hospitalization)
  Sender: FDA-Public Use
  Company Number: B0609907A

PATIENT
  Age: 49 Year
  Sex: Male

DRUGS (2)
  1. LAMIVUDINE [Suspect]
     Dosage: 100MG PER DAY
     Dates: start: 19990101
  2. ADEFOVIR DIPIVOXIL KIT [Suspect]
     Dosage: 100MG PER DAY
     Dates: start: 20040101

REACTIONS (3)
  - HEPATITIS B [None]
  - HEPATITIS B DNA INCREASED [None]
  - VIRAL HEPATITIS CARRIER [None]
